FAERS Safety Report 10948454 (Version 1)
Quarter: 2015Q1

REPORT INFORMATION
  Report Type: Spontaneous
  Country: US (occurrence: US)
  Receive Date: 20150324
  Receipt Date: 20150324
  Transmission Date: 20150721
  Serious: Yes (Hospitalization, Other)
  Sender: FDA-Public Use
  Company Number: US-JNJFOC-20150309232

PATIENT
  Age: 52 Year
  Sex: Female

DRUGS (3)
  1. OXYCODONE [Concomitant]
     Active Substance: OXYCODONE
     Indication: BREAKTHROUGH PAIN
     Route: 048
  2. DURAGESIC [Suspect]
     Active Substance: FENTANYL
     Indication: FIBROMYALGIA
     Route: 062
     Dates: start: 1998, end: 199808
  3. DURAGESIC [Suspect]
     Active Substance: FENTANYL
     Indication: FIBROMYALGIA
     Route: 062
     Dates: start: 2000, end: 201407

REACTIONS (10)
  - Adverse event [Unknown]
  - Fall [Recovered/Resolved]
  - Chondropathy [Not Recovered/Not Resolved]
  - Joint stiffness [Recovered/Resolved]
  - Dermatitis contact [Recovered/Resolved]
  - Product quality issue [Recovered/Resolved]
  - Gastrooesophageal reflux disease [Recovered/Resolved]
  - Off label use [Unknown]
  - Loss of consciousness [Recovered/Resolved]
  - Wrong technique in drug usage process [Recovered/Resolved]

NARRATIVE: CASE EVENT DATE: 1998
